FAERS Safety Report 10756641 (Version 2)
Quarter: 2017Q4

REPORT INFORMATION
  Report Type: Report from Study
  Country: US (occurrence: US)
  Receive Date: 20150202
  Receipt Date: 20171005
  Transmission Date: 20180320
  Serious: Yes (Death, Hospitalization, Other)
  Sender: FDA-Public Use
  Company Number: PHEH2014US025870

PATIENT
  Sex: Female
  Weight: 166 kg

DRUGS (1)
  1. FEMARA [Suspect]
     Active Substance: LETROZOLE
     Indication: BREAST CANCER
     Dosage: 10 MG, QD
     Route: 048
     Dates: start: 20090717

REACTIONS (3)
  - Breast cancer metastatic [Not Recovered/Not Resolved]
  - Pneumonitis [Fatal]
  - Malignant neoplasm progression [Not Recovered/Not Resolved]
